FAERS Safety Report 25857107 (Version 1)
Quarter: 2025Q3

REPORT INFORMATION
  Report Type: Spontaneous
  Country: US (occurrence: US)
  Receive Date: 20250929
  Receipt Date: 20250929
  Transmission Date: 20251021
  Serious: Yes (Death, Other)
  Sender: JOHNSON AND JOHNSON
  Company Number: US-JNJFOC-20250934985

PATIENT

DRUGS (1)
  1. CARVYKTI [Suspect]
     Active Substance: CILTACABTAGENE AUTOLEUCEL
     Indication: Plasma cell myeloma refractory
     Route: 065

REACTIONS (7)
  - Sepsis [Fatal]
  - Immune-mediated enterocolitis [Unknown]
  - Guillain-Barre syndrome [Unknown]
  - Cranial nerve paralysis [Recovered/Resolved]
  - Parkinsonism [Unknown]
  - Cytokine release syndrome [Unknown]
  - Hypofibrinogenaemia [Unknown]
